FAERS Safety Report 5571737-6 (Version None)
Quarter: 2007Q4

REPORT INFORMATION
  Report Type: 
  Country: None (occurrence: None)
  Receive Date: 20071221
  Receipt Date: 20071219
  Transmission Date: 20080405
  Serious: Yes (Other)
  Sender: FDA-Public Use
  Company Number: A0700337A

PATIENT
  Age: 51 Year
  Sex: Female

DRUGS (6)
  1. FLOVENT [Suspect]
     Route: 055
     Dates: start: 20070201, end: 20071029
  2. XOPENEX [Suspect]
     Indication: COUGH
     Dosage: 2PUFF AS REQUIRED
     Route: 055
     Dates: start: 20070201, end: 20070201
  3. SINGULAIR [Suspect]
  4. PROAIR HFA [Suspect]
     Route: 055
  5. CLARITIN [Concomitant]
  6. ASMANEX TWISTHALER [Concomitant]

REACTIONS (4)
  - ASTHMA [None]
  - COUGH [None]
  - DRUG INEFFECTIVE [None]
  - DRUG INTOLERANCE [None]
